FAERS Safety Report 7940436-5 (Version None)
Quarter: 2011Q4

REPORT INFORMATION
  Report Type: 
  Country: None (occurrence: None)
  Receive Date: 20111128
  Receipt Date: 20111026
  Transmission Date: 20120403
  Serious: Yes (Other)
  Sender: FDA-Public Use
  Company Number: US-BAYER-200932608NA

PATIENT
  Sex: Male

DRUGS (4)
  1. MAGNEVIST [Suspect]
     Indication: NUCLEAR MAGNETIC RESONANCE IMAGING
  2. GADOLINIUM IN UNSPECIFIED DRUG [Suspect]
     Indication: NUCLEAR MAGNETIC RESONANCE IMAGING
  3. MAGNEVIST [Suspect]
     Indication: ANGIOGRAM
     Dosage: UNK
  4. GADOLINIUM IN UNSPECIFIED DRUG [Suspect]
     Indication: ANGIOGRAM
     Dosage: UNK
     Dates: start: 20070906

REACTIONS (14)
  - DRY SKIN [None]
  - SKIN HYPERTROPHY [None]
  - ARTHRALGIA [None]
  - SCAR [None]
  - SWELLING [None]
  - SKIN EXFOLIATION [None]
  - DEFORMITY [None]
  - PAIN IN EXTREMITY [None]
  - IMPAIRED WORK ABILITY [None]
  - DEPRESSION [None]
  - ANXIETY [None]
  - NEPHROGENIC SYSTEMIC FIBROSIS [None]
  - INSOMNIA [None]
  - PRURITUS [None]
